FAERS Safety Report 23669564 (Version 1)
Quarter: 2024Q1

REPORT INFORMATION
  Report Type: Report from Study
  Country: CN (occurrence: CN)
  Receive Date: 20240325
  Receipt Date: 20240325
  Transmission Date: 20240409
  Serious: Yes (Other)
  Sender: FDA-Public Use
  Company Number: CN-DSJP-DSJ-2024-112584

PATIENT
  Age: 49 Year
  Sex: Male

DRUGS (2)
  1. ENHERTU [Suspect]
     Active Substance: FAM-TRASTUZUMAB DERUXTECAN-NXKI
     Indication: Gastric cancer stage IV
     Dosage: DOSE OF 6.4 MG/KG IN A 21-DAY CYCLE
     Route: 065
     Dates: start: 202104
  2. ENHERTU [Suspect]
     Active Substance: FAM-TRASTUZUMAB DERUXTECAN-NXKI
     Dosage: 5.4 MG/KG
     Route: 065
     Dates: start: 202104

REACTIONS (3)
  - Myelosuppression [Unknown]
  - Gastrointestinal disorder [Unknown]
  - Therapy partial responder [Unknown]
